FAERS Safety Report 6931095-9 (Version None)
Quarter: 2010Q3

REPORT INFORMATION
  Report Type: 
  Country: None (occurrence: None)
  Receive Date: 20100818
  Receipt Date: 20100809
  Transmission Date: 20110219
  Serious: Yes (Other)
  Sender: FDA-Public Use
  Company Number: JP-AMGEN-QUU428115

PATIENT
  Sex: Female

DRUGS (8)
  1. ENBREL [Suspect]
     Indication: RHEUMATOID ARTHRITIS
     Route: 058
     Dates: start: 20100628, end: 20100708
  2. LOXONIN [Concomitant]
     Indication: SPINAL COLUMN STENOSIS
     Route: 048
     Dates: start: 20000530
  3. BONALON [Concomitant]
     Indication: OSTEOPOROSIS PROPHYLAXIS
     Route: 048
  4. PREDNISOLONE [Concomitant]
     Indication: RHEUMATOID ARTHRITIS
     Route: 048
     Dates: start: 20000530
  5. ZYLORIC [Concomitant]
     Indication: HYPERURICAEMIA
     Route: 048
     Dates: start: 20060802
  6. MARZULENE S [Concomitant]
     Indication: GASTRITIS
     Route: 048
  7. AZULFIDINE - SLOW RELEASE [Concomitant]
     Indication: RHEUMATOID ARTHRITIS
     Route: 048
     Dates: start: 20070427
  8. OPALMON [Concomitant]
     Indication: SPINAL COLUMN STENOSIS
     Route: 045
     Dates: start: 20021213

REACTIONS (6)
  - ABDOMINAL PAIN [None]
  - CONDITION AGGRAVATED [None]
  - LUMBAR SPINAL STENOSIS [None]
  - PAIN [None]
  - PYREXIA [None]
  - VOMITING [None]
